FAERS Safety Report 25971767 (Version 2)
Quarter: 2025Q4

REPORT INFORMATION
  Report Type: Report from Study
  Country: CA (occurrence: None)
  Receive Date: 20251029
  Receipt Date: 20251126
  Transmission Date: 20260117
  Serious: Yes (Hospitalization, Other)
  Sender: UCB
  Company Number: CA-UCBSA-2025061494

PATIENT
  Age: 57 Year

DRUGS (4)
  1. CERTOLIZUMAB PEGOL [Suspect]
     Active Substance: CERTOLIZUMAB PEGOL
     Indication: Ankylosing spondylitis
     Dosage: 200 MILLIGRAM, EV 2 WEEKS(QOW)
  2. RAMIPRIL [Concomitant]
     Active Substance: RAMIPRIL
     Indication: Product used for unknown indication
  3. ASPIRIN [Concomitant]
     Active Substance: ASPIRIN
     Indication: Product used for unknown indication
  4. BISOPROLOL FUMARATE [Concomitant]
     Active Substance: BISOPROLOL FUMARATE
     Indication: Product used for unknown indication

REACTIONS (9)
  - Bacteraemia [Not Recovered/Not Resolved]
  - Heart valve replacement [Not Recovered/Not Resolved]
  - Cardiac pacemaker replacement [Not Recovered/Not Resolved]
  - Endocarditis [Not Recovered/Not Resolved]
  - Periodontal disease [Not Recovered/Not Resolved]
  - Night sweats [Not Recovered/Not Resolved]
  - Feeling hot [Not Recovered/Not Resolved]
  - Chills [Not Recovered/Not Resolved]
  - Insomnia [Not Recovered/Not Resolved]
